FAERS Safety Report 8260130-3 (Version None)
Quarter: 2012Q2

REPORT INFORMATION
  Report Type: 
  Country: None (occurrence: None)
  Receive Date: 20120404
  Receipt Date: 20120402
  Transmission Date: 20120825
  Serious: Yes (Other)
  Sender: FDA-Public Use
  Company Number: US-PFIZER INC-2012083337

PATIENT
  Sex: Female
  Weight: 92 kg

DRUGS (6)
  1. NORFLEX [Concomitant]
     Indication: INFLAMMATION
     Dosage: UNK
  2. LEVOTHYROXINE [Concomitant]
     Indication: THYROIDECTOMY
     Dosage: UNK
  3. LYRICA [Concomitant]
     Indication: NERVE INJURY
     Dosage: UNK
  4. CYMBALTA [Concomitant]
     Dosage: UNK
  5. LIPITOR [Suspect]
     Indication: BLOOD CHOLESTEROL INCREASED
     Dosage: 20 MG, 1X/DAY
     Route: 048
     Dates: start: 20120201
  6. POTASSIUM [Concomitant]
     Dosage: UNK

REACTIONS (1)
  - EAR INFECTION [None]
